FAERS Safety Report 7610350-3 (Version None)
Quarter: 2011Q3

REPORT INFORMATION
  Report Type: 
  Country: None (occurrence: None)
  Receive Date: 20110715
  Receipt Date: 20100707
  Transmission Date: 20111222
  Serious: No
  Sender: FDA-Public Use
  Company Number: A0869564A

PATIENT
  Sex: Female

DRUGS (2)
  1. FORTEO [Concomitant]
     Route: 042
  2. CLOBETASOL PROPIONATE [Suspect]
     Route: 061
     Dates: start: 20091113

REACTIONS (3)
  - ADVERSE DRUG REACTION [None]
  - RASH [None]
  - RASH MACULAR [None]
